FAERS Safety Report 7104669-2 (Version None)
Quarter: 2010Q4

REPORT INFORMATION
  Report Type: 
  Country: None (occurrence: None)
  Receive Date: 20101116
  Receipt Date: 20101105
  Transmission Date: 20110411
  Serious: Yes (Hospitalization, Other)
  Sender: FDA-Public Use
  Company Number: US-BAYER-200942157NA

PATIENT
  Age: 24 Year
  Sex: Female
  Weight: 82 kg

DRUGS (7)
  1. YAZ [Suspect]
     Indication: CONTRACEPTION
     Dates: start: 20071201, end: 20071216
  2. LOVENOX [Concomitant]
  3. LOVENOX [Concomitant]
     Dosage: UNIT DOSE: 80 MG
  4. FLUIDS-NSS [Concomitant]
  5. NSAID [Concomitant]
     Dates: start: 20000101
  6. CLARITIN [Concomitant]
     Indication: MULTIPLE ALLERGIES
     Dosage: DAILY AS DIRECTED.
  7. FLINTSTONES VITAMINS [Concomitant]
     Dosage: DAILY AS DIRECTED.

REACTIONS (5)
  - ASTHENIA [None]
  - DYSPNOEA [None]
  - LETHARGY [None]
  - PLEURITIC PAIN [None]
  - PULMONARY EMBOLISM [None]
